FAERS Safety Report 5898767-9 (Version None)
Quarter: 2008Q3

REPORT INFORMATION
  Report Type: 
  Country: None (occurrence: None)
  Receive Date: 20080925
  Receipt Date: 20080605
  Transmission Date: 20090109
  Serious: No
  Sender: FDA-Public Use
  Company Number: A0731503A

PATIENT
  Sex: Male

DRUGS (2)
  1. WELLBUTRIN XL [Suspect]
     Indication: DRUG USE FOR UNKNOWN INDICATION
     Dosage: 300MG PER DAY
     Route: 048
  2. MINOCYCLINE HCL [Concomitant]

REACTIONS (6)
  - AFFECT LABILITY [None]
  - FEELING ABNORMAL [None]
  - IMPULSE-CONTROL DISORDER [None]
  - OBSESSIVE THOUGHTS [None]
  - TEARFULNESS [None]
  - WEIGHT DECREASED [None]
